FAERS Safety Report 21257845 (Version 1)
Quarter: 2022Q3

REPORT INFORMATION
  Report Type: Spontaneous
  Country: US (occurrence: US)
  Receive Date: 20220826
  Receipt Date: 20220826
  Transmission Date: 20221027
  Serious: Yes (Other)
  Sender: FDA-Public Use
  Company Number: US-TEVA-2022-US-2067484

PATIENT
  Sex: Male

DRUGS (1)
  1. ATOMOXETINE [Suspect]
     Active Substance: ATOMOXETINE
     Indication: Product used for unknown indication
     Dosage: STRENGTH: 80 MG

REACTIONS (11)
  - Erectile dysfunction [Unknown]
  - Urticaria [Unknown]
  - Pruritus [Unknown]
  - Myalgia [Unknown]
  - Muscular weakness [Unknown]
  - Renal pain [Unknown]
  - Dysuria [Unknown]
  - Nausea [Unknown]
  - Feeding disorder [Unknown]
  - Dysphagia [Unknown]
  - Body temperature increased [Unknown]
